FAERS Safety Report 4958251-3 (Version None)
Quarter: 2006Q1

REPORT INFORMATION
  Report Type: 
  Country: None (occurrence: None)
  Receive Date: 20060330
  Receipt Date: 20060320
  Transmission Date: 20060701
  Serious: Yes (Other)
  Sender: FDA-Public Use
  Company Number: GB-GLAXOSMITHKLINE-B0418407A

PATIENT
  Sex: Female

DRUGS (1)
  1. SEROXAT [Suspect]
     Route: 065

REACTIONS (5)
  - AGGRESSION [None]
  - BINGE EATING [None]
  - COMPLETED SUICIDE [None]
  - ILL-DEFINED DISORDER [None]
  - MANIA [None]
